FAERS Safety Report 9443670 (Version 1)
Quarter: 2013Q3

REPORT INFORMATION
  Report Type: Spontaneous
  Country: TR (occurrence: TR)
  Receive Date: 20130806
  Receipt Date: 20130806
  Transmission Date: 20140515
  Serious: Yes (Other)
  Sender: FDA-Public Use
  Company Number: PHHY2013TR082503

PATIENT
  Age: 5 Year
  Sex: Female

DRUGS (1)
  1. BENZYLPENICILLIN [Suspect]
     Indication: TONSILLITIS

REACTIONS (8)
  - Hypersensitivity vasculitis [Recovered/Resolved]
  - Local swelling [Recovered/Resolved]
  - Pain in extremity [Recovered/Resolved]
  - Erythema [Recovered/Resolved]
  - Skin plaque [Recovered/Resolved]
  - Skin oedema [Recovered/Resolved]
  - Skin mass [Recovered/Resolved]
  - Skin necrosis [Recovered/Resolved]
